FAERS Safety Report 9826890 (Version 1)
Quarter: 2014Q1

REPORT INFORMATION
  Report Type: Spontaneous
  Country: US (occurrence: None)
  Receive Date: 20140115
  Receipt Date: 20140115
  Transmission Date: 20141002
  Serious: Yes (Other)
  Sender: FDA-Public Use
  Company Number: UTC-042773

PATIENT
  Age: 22 Year
  Sex: Female

DRUGS (12)
  1. REMODULIN (INJECTION FOR INFUSION) (TREPROSTINIL SODIUM) [Suspect]
     Indication: PULMONARY ARTERIAL HYPERTENSION
     Dosage: 0.13 UG/KG, 1 IN 1 MIN
     Route: 058
     Dates: start: 20070909
  2. REMODULIN (INJECTION FOR INFUSION) (TREPROSTINIL SODIUM) [Suspect]
     Indication: BRONCHOPULMONARY DYSPLASIA
     Dosage: 0.13 UG/KG, 1 IN 1 MIN
     Route: 058
     Dates: start: 20070909
  3. REMODULIN (INJECTION FOR INFUSION) (TREPROSTINIL SODIUM) [Suspect]
     Indication: PULMONARY ARTERIAL HYPERTENSION
     Dosage: 0.13 UG/KG, 1 IN 1 MIN
     Route: 058
     Dates: start: 20070909
  4. REMODULIN (INJECTION FOR INFUSION) (TREPROSTINIL SODIUM) [Suspect]
     Indication: BRONCHOPULMONARY DYSPLASIA
     Dosage: 0.13 UG/KG, 1 IN 1 MIN
     Route: 058
     Dates: start: 20070909
  5. TRACKEER (BOSENTAN) (UNKNOWN) [Concomitant]
  6. REVATIO (SILDENAFIL CITRATE) (UNKNOWN) [Concomitant]
  7. LASIX (FUROSEMIDE) (UNKNOWN) [Concomitant]
  8. DIGOXIN (UNKNOWN) [Concomitant]
  9. SYNTHROID (LEVOTHYROXINE SODIUM) (UNKNOWN) [Concomitant]
  10. ALDACTONE (SPIRALNOLACTONE) (UNKNOWN) [Concomitant]
  11. POTASSIUM (UNKNOWN) [Concomitant]
  12. PRILOSEC (OMEPRAZOLE) (UNKNOWN) [Concomitant]

REACTIONS (2)
  - Infusion site infection [None]
  - Purulence [None]
